FAERS Safety Report 20183127 (Version 3)
Quarter: 2022Q2

REPORT INFORMATION
  Report Type: Spontaneous
  Country: US (occurrence: US)
  Receive Date: 20211214
  Receipt Date: 20220404
  Transmission Date: 20220720
  Serious: Yes (Other)
  Sender: FDA-Public Use
  Company Number: US-MALLINCKRODT-T202105376

PATIENT
  Sex: Male
  Weight: 78 kg

DRUGS (4)
  1. H.P. ACTHAR [Suspect]
     Active Substance: CORTICOTROPIN
     Indication: Rheumatoid arthritis
     Dosage: 1 MILLILITER (80 UNITS) TWO TIMES A WEEK
     Route: 058
     Dates: start: 202104
  2. H.P. ACTHAR [Suspect]
     Active Substance: CORTICOTROPIN
     Indication: Ankylosing spondylitis
  3. H.P. ACTHAR [Suspect]
     Active Substance: CORTICOTROPIN
     Indication: Juvenile spondyloarthritis
  4. H.P. ACTHAR [Suspect]
     Active Substance: CORTICOTROPIN
     Indication: Polyarthritis

REACTIONS (3)
  - Arthritis [Not Recovered/Not Resolved]
  - Spinal operation [Unknown]
  - COVID-19 [Unknown]

NARRATIVE: CASE EVENT DATE: 20210101
